FAERS Safety Report 24294494 (Version 2)
Quarter: 2024Q4

REPORT INFORMATION
  Report Type: Spontaneous
  Country: BE (occurrence: BE)
  Receive Date: 20240906
  Receipt Date: 20241030
  Transmission Date: 20250115
  Serious: Yes (Life-Threatening, Hospitalization)
  Sender: GUERBET
  Company Number: BE-GUERBET / CODALI-BE-20240007

PATIENT
  Age: 75 Year
  Sex: Male

DRUGS (2)
  1. LIPIODOL [Suspect]
     Active Substance: ETHIODIZED OIL
     Indication: Aneurysm repair
     Dosage: TWO VIALS OF GLUBRAN WITH LIPIODOL AT A 1:4 RATIO.?A COMPLETE VIAL OF LIPIODOL WAS USED.
     Route: 013
     Dates: start: 202301, end: 202301
  2. DEVICE [Suspect]
     Active Substance: DEVICE
     Indication: Aneurysm repair
     Route: 013
     Dates: start: 202301, end: 202301

REACTIONS (3)
  - Infection [Recovering/Resolving]
  - Product use in unapproved indication [Recovering/Resolving]
  - Drug ineffective for unapproved indication [Unknown]

NARRATIVE: CASE EVENT DATE: 20230101
